FAERS Safety Report 20618588 (Version 1)
Quarter: 2022Q1

REPORT INFORMATION
  Report Type: Report from Study
  Country: US (occurrence: US)
  Receive Date: 20220322
  Receipt Date: 20220322
  Transmission Date: 20220423
  Serious: Yes (Death, Hospitalization)
  Sender: FDA-Public Use
  Company Number: US-Accord-257298

PATIENT
  Age: 74 Year
  Sex: Female

DRUGS (1)
  1. CLOZAPINE [Suspect]
     Active Substance: CLOZAPINE
     Indication: Schizoaffective disorder
     Dosage: TWICE A DAY AND 50MG AT BEDTIME
     Dates: start: 20211216

REACTIONS (2)
  - Death [Fatal]
  - Clostridium difficile infection [Unknown]

NARRATIVE: CASE EVENT DATE: 20220222
